FAERS Safety Report 5205853-5 (Version None)
Quarter: 2007Q1

REPORT INFORMATION
  Report Type: 
  Country: None (occurrence: None)
  Receive Date: 20070105
  Receipt Date: 20070105
  Transmission Date: 20070707
  Serious: Yes (Hospitalization)
  Sender: FDA-Public Use
  Company Number: None

PATIENT
  Sex: Male
  Weight: 72.5755 kg

DRUGS (5)
  1. AZATHIOPRINE [Suspect]
     Indication: CROHN'S DISEASE
     Dosage: 75MG DAILY PO
     Route: 048
     Dates: start: 20060808, end: 20060911
  2. METHOCARBAMOL [Concomitant]
  3. FOLIC ACID [Concomitant]
  4. MESALAMINE [Concomitant]
  5. CYANOCOBALAMIN [Concomitant]

REACTIONS (4)
  - ASCITES [None]
  - DRUG INEFFECTIVE [None]
  - ELECTROLYTE IMBALANCE [None]
  - PANCREATITIS [None]
